FAERS Safety Report 4976882-1 (Version None)
Quarter: 2006Q2

REPORT INFORMATION
  Report Type: 
  Country: None (occurrence: None)
  Receive Date: 20060418
  Receipt Date: 20060418
  Transmission Date: 20061013
  Serious: Yes (Hospitalization)
  Sender: FDA-Public Use
  Company Number: None

PATIENT
  Sex: Male
  Weight: 78.9259 kg

DRUGS (7)
  1. OXALIPLATIN 130 MG /M2 =271 NG [Suspect]
     Indication: RECURRENT CANCER
     Dosage: 271 MG ONCE EVERY 21 DAYS IV
     Route: 042
     Dates: start: 20060404
  2. OXALIPLATIN 130 MG /M2 =271 NG [Suspect]
     Indication: TONSIL CANCER
     Dosage: 271 MG ONCE EVERY 21 DAYS IV
     Route: 042
     Dates: start: 20060404
  3. DOCETAXEL 60 MG/M2=125 MG [Suspect]
     Indication: RECURRENT CANCER
     Dosage: 125 MG ONCE EVERY 21 DAYS IV
     Route: 042
     Dates: start: 20060404
  4. DOCETAXEL 60 MG/M2=125 MG [Suspect]
     Indication: TONSIL CANCER
     Dosage: 125 MG ONCE EVERY 21 DAYS IV
     Route: 042
     Dates: start: 20060404
  5. APREPITANT [Concomitant]
  6. DEXAMETHASONE [Concomitant]
  7. ONDANSETRON [Concomitant]

REACTIONS (3)
  - HAEMATOCRIT DECREASED [None]
  - HAEMOGLOBIN DECREASED [None]
  - THROMBOCYTOPENIA [None]
